FAERS Safety Report 17964050 (Version 1)
Quarter: 2020Q2

REPORT INFORMATION
  Report Type: Spontaneous
  Country: US (occurrence: US)
  Receive Date: 20200630
  Receipt Date: 20200630
  Transmission Date: 20200714
  Serious: Yes (Death, Other)
  Sender: FDA-Public Use
  Company Number: US-SA-2020SA167342

PATIENT

DRUGS (1)
  1. ZANTAC [Suspect]
     Active Substance: RANITIDINE HYDROCHLORIDE

REACTIONS (7)
  - Testis cancer [Fatal]
  - Prostate cancer [Fatal]
  - Oesophageal carcinoma [Fatal]
  - Gastric cancer [Fatal]
  - Lung neoplasm malignant [Fatal]
  - Gastrointestinal carcinoma [Fatal]
  - Renal cancer [Fatal]

NARRATIVE: CASE EVENT DATE: 201806
